FAERS Safety Report 9477955 (Version 1)
Quarter: 2013Q3

REPORT INFORMATION
  Report Type: Spontaneous
  Country: US (occurrence: None)
  Receive Date: 20130826
  Receipt Date: 20130826
  Transmission Date: 20140515
  Serious: Yes (Hospitalization)
  Sender: FDA-Public Use
  Company Number: None

PATIENT
  Age: 78 Year
  Sex: Male

DRUGS (2)
  1. WARFARIN [Suspect]
     Dosage: 5 MG HS PO
     Route: 048
     Dates: start: 20130213, end: 20130423
  2. CLOPIDOGREL [Suspect]
     Dosage: 75 MG EVERY DAY PO
     Route: 048
     Dates: start: 20130403

REACTIONS (5)
  - Lactic acidosis [None]
  - Gastric polyps [None]
  - Anorectal disorder [None]
  - Thrombosis [None]
  - Atrial fibrillation [None]
